FAERS Safety Report 14422484 (Version 1)
Quarter: 2018Q1

REPORT INFORMATION
  Report Type: Spontaneous
  Country: US (occurrence: US)
  Receive Date: 20180123
  Receipt Date: 20180123
  Transmission Date: 20180509
  Serious: No
  Sender: FDA-Public Use
  Company Number: US-SHIRE-US201801556

PATIENT

DRUGS (1)
  1. XIIDRA [Suspect]
     Active Substance: LIFITEGRAST
     Indication: DRY EYE
     Route: 047

REACTIONS (6)
  - Instillation site reaction [Unknown]
  - Instillation site lacrimation [Unknown]
  - Metamorphopsia [Unknown]
  - Rhinorrhoea [Unknown]
  - Instillation site erythema [Unknown]
  - Inappropriate schedule of drug administration [Unknown]
